FAERS Safety Report 5342043-X (Version None)
Quarter: 2007Q2

REPORT INFORMATION
  Report Type: 
  Country: None (occurrence: None)
  Receive Date: 20070530
  Receipt Date: 20070530
  Transmission Date: 20071010
  Serious: Yes (Life-Threatening, Hospitalization, Disabling, Other)
  Sender: FDA-Public Use
  Company Number: None

PATIENT
  Age: 57 Year
  Sex: Male
  Weight: 113.3993 kg

DRUGS (2)
  1. DEPACON [Suspect]
     Indication: MANIA
     Dosage: IV
     Route: 042
     Dates: start: 20051205, end: 20051205
  2. DEPACON [Suspect]
     Indication: PSYCHOTIC DISORDER
     Dosage: IV
     Route: 042
     Dates: start: 20051205, end: 20051205

REACTIONS (6)
  - AGGRESSION [None]
  - MANIA [None]
  - MENTAL DISORDER [None]
  - OEDEMA PERIPHERAL [None]
  - TOXIC EPIDERMAL NECROLYSIS [None]
  - URTICARIA [None]
